FAERS Safety Report 4544603-2 (Version None)
Quarter: 2004Q4

REPORT INFORMATION
  Report Type: 
  Country: None (occurrence: None)
  Receive Date: 20041230
  Receipt Date: 20041220
  Transmission Date: 20050328
  Serious: Yes (Life-Threatening, Disabling)
  Sender: FDA-Public Use
  Company Number: 2004072340

PATIENT
  Age: 65 Year
  Sex: Male
  Weight: 88.4514 kg

DRUGS (4)
  1. LIPITOR [Suspect]
     Indication: BLOOD CHOLESTEROL INCREASED
     Dosage: 10 MG (10 MG, 1 IN 1 D), ORAL
     Route: 048
     Dates: start: 20030903, end: 20031012
  2. INFLUENZA VACCINE (INFLUENZA VACCINE) [Suspect]
     Indication: ILL-DEFINED DISORDER
     Dates: start: 20030903
  3. BETA BLOCKING AGENTS (BETA BLOCKING AGENTS) [Concomitant]
  4. DIAZEPAM [Concomitant]

REACTIONS (9)
  - ANXIETY [None]
  - APNOEA [None]
  - CONFUSIONAL STATE [None]
  - DECREASED APPETITE [None]
  - DEPRESSION [None]
  - EARLY MORNING AWAKENING [None]
  - MEMORY IMPAIRMENT [None]
  - NERVOUSNESS [None]
  - PHOBIA [None]
